FAERS Safety Report 21222818 (Version 1)
Quarter: 2022Q3

REPORT INFORMATION
  Report Type: Spontaneous
  Country: US (occurrence: None)
  Receive Date: 20220816
  Receipt Date: 20220816
  Transmission Date: 20221027
  Serious: No
  Sender: FDA-Public Use
  Company Number: None

PATIENT
  Age: 43 Year
  Sex: Female
  Weight: 91 kg

DRUGS (1)
  1. DIPHENHYDRAMINE HYDROCHLORIDE [Suspect]
     Active Substance: DIPHENHYDRAMINE HYDROCHLORIDE
     Dosage: 25 MG UNKNOWN PO
     Route: 048

REACTIONS (4)
  - Vomiting [None]
  - Loss of consciousness [None]
  - Suicidal ideation [None]
  - Intentional overdose [None]

NARRATIVE: CASE EVENT DATE: 20220811
